FAERS Safety Report 23964024 (Version 1)
Quarter: 2024Q2

REPORT INFORMATION
  Report Type: Spontaneous
  Country: ES (occurrence: ES)
  Receive Date: 20240611
  Receipt Date: 20240611
  Transmission Date: 20240715
  Serious: Yes (Hospitalization)
  Sender: FDA-Public Use
  Company Number: None

PATIENT
  Age: 48 Year
  Sex: Male

DRUGS (1)
  1. DEXAMETHASONE [Suspect]
     Active Substance: DEXAMETHASONE
     Indication: Astrocytoma
     Route: 065
     Dates: start: 20221201, end: 20240124

REACTIONS (2)
  - Glucocorticoid deficiency [Recovered/Resolved with Sequelae]
  - Secondary adrenocortical insufficiency [Recovered/Resolved with Sequelae]
